FAERS Safety Report 24635853 (Version 1)
Quarter: 2024Q4

REPORT INFORMATION
  Report Type: Spontaneous
  Country: US (occurrence: None)
  Receive Date: 20241118
  Receipt Date: 20241118
  Transmission Date: 20250114
  Serious: Yes (Hospitalization)
  Sender: Public
  Company Number: None

PATIENT
  Sex: Male

DRUGS (4)
  1. MYCOPHENOLIC ACID [Suspect]
     Active Substance: MYCOPHENOLIC ACID
     Indication: Renal transplant
     Route: 048
     Dates: start: 20200226
  2. PROCARDIA CAP 10MG [Concomitant]
  3. TACROLIMUS [Concomitant]
  4. TACROLIMUS A [Concomitant]

REACTIONS (2)
  - Pyrexia [None]
  - Infection [None]
